FAERS Safety Report 8250209-4 (Version None)
Quarter: 2012Q2

REPORT INFORMATION
  Report Type: 
  Country: None (occurrence: None)
  Receive Date: 20120402
  Receipt Date: 20120323
  Transmission Date: 20120825
  Serious: Yes (Hospitalization)
  Sender: FDA-Public Use
  Company Number: PHHY2012PL025519

PATIENT
  Age: 40 Year
  Sex: Female

DRUGS (3)
  1. ASPIRIN [Suspect]
     Dosage: 150 MG, UNK
  2. CLOPIDOGREL [Suspect]
     Dosage: 75 MG, UNK
  3. ASPIRIN [Suspect]
     Dosage: 75 MG, UNK

REACTIONS (4)
  - PULMONARY ALVEOLAR HAEMORRHAGE [None]
  - HAEMOPTYSIS [None]
  - COUGH [None]
  - CREPITATIONS [None]
